FAERS Safety Report 9700731 (Version 3)
Quarter: 2014Q1

REPORT INFORMATION
  Report Type: Spontaneous
  Country: PR (occurrence: US)
  Receive Date: 20131121
  Receipt Date: 20140225
  Transmission Date: 20141002
  Serious: No
  Sender: FDA-Public Use
  Company Number: PR-PFIZER INC-2013330973

PATIENT
  Age: 61 Year
  Sex: Male

DRUGS (2)
  1. SUTENT [Suspect]
     Indication: METASTATIC RENAL CELL CARCINOMA
     Dosage: 50 MG, DAILY (4 WEEKS ON AND 2 OFF)
     Route: 048
     Dates: start: 20130809, end: 20131115
  2. LOTREL 40/10 [Concomitant]
     Dosage: UNK
     Route: 048

REACTIONS (5)
  - Ejection fraction decreased [Unknown]
  - Hypertension [Unknown]
  - Constipation [Unknown]
  - Disease progression [Unknown]
  - Metastatic renal cell carcinoma [Unknown]
